FAERS Safety Report 18925366 (Version 1)
Quarter: 2021Q1

REPORT INFORMATION
  Report Type: Spontaneous
  Country: US (occurrence: US)
  Receive Date: 20210222
  Receipt Date: 20210222
  Transmission Date: 20210420
  Serious: Yes (Other)
  Sender: FDA-Public Use
  Company Number: US-TEVA-2021-US-1882968

PATIENT
  Age: 5 Month
  Sex: Female

DRUGS (5)
  1. ALBUTEROL HFA TEVA [Suspect]
     Active Substance: ALBUTEROL SULFATE
     Indication: LARYNGOMALACIA
  2. ALBUTEROL HFA TEVA [Suspect]
     Active Substance: ALBUTEROL SULFATE
     Indication: RESPIRATORY TRACT IRRITATION
  3. ALBUTEROL HFA TEVA [Suspect]
     Active Substance: ALBUTEROL SULFATE
     Indication: APNOEA
  4. ALBUTEROL HFA TEVA [Suspect]
     Active Substance: ALBUTEROL SULFATE
     Indication: ASPIRATION PLEURAL CAVITY
     Route: 055
     Dates: start: 202102
  5. ALBUTEROL HFA TEVA [Suspect]
     Active Substance: ALBUTEROL SULFATE
     Indication: RESTRICTIVE PULMONARY DISEASE

REACTIONS (7)
  - Choking [Unknown]
  - Device delivery system issue [Unknown]
  - Cough [Unknown]
  - Pulmonary congestion [Unknown]
  - Product odour abnormal [Unknown]
  - Device defective [Unknown]
  - Dyspnoea [Unknown]

NARRATIVE: CASE EVENT DATE: 202102
